FAERS Safety Report 9892112 (Version 2)
Quarter: 2014Q1

REPORT INFORMATION
  Report Type: Spontaneous
  Country: GB (occurrence: GB)
  Receive Date: 20140212
  Receipt Date: 20140218
  Transmission Date: 20141002
  Serious: Yes (Other)
  Sender: FDA-Public Use
  Company Number: GB-GLAXOSMITHKLINE-B0967770A

PATIENT
  Age: 41 Year
  Sex: Male

DRUGS (2)
  1. LAMICTAL [Suspect]
     Indication: PARTIAL SEIZURES WITH SECONDARY GENERALISATION
     Dosage: 200MG TWICE PER DAY
     Route: 048
  2. TEGRETOL RETARD [Suspect]
     Indication: PARTIAL SEIZURES WITH SECONDARY GENERALISATION
     Dosage: 100MG TWICE PER DAY
     Route: 048

REACTIONS (11)
  - Convulsion [Not Recovered/Not Resolved]
  - Complex partial seizures [Not Recovered/Not Resolved]
  - Toxicity to various agents [Not Recovered/Not Resolved]
  - Insomnia [Not Recovered/Not Resolved]
  - Confusional state [Not Recovered/Not Resolved]
  - Hallucination [Not Recovered/Not Resolved]
  - Anxiety [Recovering/Resolving]
  - Fear [Recovering/Resolving]
  - Delusional perception [Not Recovered/Not Resolved]
  - Feeling abnormal [Not Recovered/Not Resolved]
  - Drug interaction [Not Recovered/Not Resolved]
